FAERS Safety Report 10098126 (Version 1)
Quarter: 2014Q2

REPORT INFORMATION
  Report Type: Spontaneous
  Country: JP (occurrence: None)
  Receive Date: 20140421
  Receipt Date: 20140421
  Transmission Date: 20141212
  Serious: Yes (Other)
  Sender: FDA-Public Use
  Company Number: ABR_01589_2014

PATIENT
  Age: 22 Year
  Sex: Female

DRUGS (1)
  1. ERYTHROCIN STEARATE [Suspect]
     Indication: INFECTION PROPHYLAXIS
     Route: 048
     Dates: start: 20080409, end: 20080414

REACTIONS (5)
  - Premature rupture of membranes [None]
  - Uterine hypertonus [None]
  - Abortion spontaneous [None]
  - Oligohydramnios [None]
  - Maternal drugs affecting foetus [None]
